FAERS Safety Report 5131187-3 (Version None)
Quarter: 2006Q4

REPORT INFORMATION
  Report Type: 
  Country: None (occurrence: None)
  Receive Date: 20061017
  Receipt Date: 20061017
  Transmission Date: 20070319
  Serious: Yes (Other)
  Sender: FDA-Public Use
  Company Number: None

PATIENT
  Sex: Female
  Weight: 64.4108 kg

DRUGS (3)
  1. PREVACID [Suspect]
     Indication: HELICOBACTER INFECTION
     Dosage: 1     TWICE A DAY   PO
     Route: 048
     Dates: start: 20061011, end: 20061014
  2. BIAXIN [Suspect]
     Indication: HELICOBACTER INFECTION
     Dosage: 1   TWICE A DAY   PO
     Route: 048
     Dates: start: 20061011, end: 20061014
  3. AMOXICILLIN [Suspect]
     Indication: HELICOBACTER INFECTION
     Dosage: 2   TWICE A DAY  PO
     Route: 048
     Dates: start: 20061011, end: 20061014

REACTIONS (11)
  - ARTHRALGIA [None]
  - ARTHROPATHY [None]
  - DIARRHOEA [None]
  - DYSGEUSIA [None]
  - JOINT STIFFNESS [None]
  - JOINT SWELLING [None]
  - MUSCULOSKELETAL STIFFNESS [None]
  - OEDEMA PERIPHERAL [None]
  - PAIN IN EXTREMITY [None]
  - PYREXIA [None]
  - TENDERNESS [None]
